FAERS Safety Report 5299600-9 (Version None)
Quarter: 2007Q2

REPORT INFORMATION
  Report Type: 
  Country: None (occurrence: None)
  Receive Date: 20070417
  Receipt Date: 20070412
  Transmission Date: 20071010
  Serious: Yes (Death)
  Sender: FDA-Public Use
  Company Number: PHEH2007US05172

PATIENT
  Age: 67 Year
  Sex: Female

DRUGS (1)
  1. ZELNORM [Suspect]
     Dates: start: 20060801

REACTIONS (1)
  - MYOCARDIAL INFARCTION [None]
